FAERS Safety Report 5215506-5 (Version None)
Quarter: 2007Q1

REPORT INFORMATION
  Report Type: 
  Country: None (occurrence: None)
  Receive Date: 20070123
  Receipt Date: 20070111
  Transmission Date: 20070707
  Serious: Yes (Hospitalization)
  Sender: FDA-Public Use
  Company Number: 2007PK00080

PATIENT
  Sex: Male
  Weight: 2.4 kg

DRUGS (4)
  1. TENORMIN [Suspect]
     Route: 064
     Dates: start: 20050408, end: 20051025
  2. PLAQUENIL [Suspect]
     Route: 064
     Dates: end: 20051025
  3. PREDNISONE [Suspect]
     Route: 064
     Dates: end: 20051025
  4. TRANDATE [Suspect]
     Route: 064
     Dates: end: 20051025

REACTIONS (2)
  - HYPOGLYCAEMIA NEONATAL [None]
  - PREMATURE BABY [None]
